FAERS Safety Report 21421162 (Version 2)
Quarter: 2022Q4

REPORT INFORMATION
  Report Type: Spontaneous
  Country: JP (occurrence: JP)
  Receive Date: 20221007
  Receipt Date: 20221014
  Transmission Date: 20230113
  Serious: Yes (Other)
  Sender: FDA-Public Use
  Company Number: JP-GSKNCCC-Case-01584445_AE-62922

PATIENT

DRUGS (1)
  1. FLUTICASONE FUROATE [Suspect]
     Active Substance: FLUTICASONE FUROATE
     Indication: Rhinitis allergic
     Dosage: 110 ?G, QD
     Route: 045
     Dates: start: 202205

REACTIONS (2)
  - Gastrointestinal candidiasis [Unknown]
  - Endoscopy upper gastrointestinal tract abnormal [Unknown]

NARRATIVE: CASE EVENT DATE: 20220901
